FAERS Safety Report 4859879-1 (Version None)
Quarter: 2005Q4

REPORT INFORMATION
  Report Type: 
  Country: None (occurrence: None)
  Receive Date: 20051215
  Receipt Date: 20051202
  Transmission Date: 20060501
  Serious: Yes (Other)
  Sender: FDA-Public Use
  Company Number: 2005153253

PATIENT
  Age: 63 Year
  Sex: Male

DRUGS (5)
  1. AMLODIPINE [Suspect]
     Indication: MYOCARDIAL INFARCTION
     Dosage: 5 MG (5 MG, 1 IN 1 D), UNKNOWN
     Route: 065
     Dates: start: 19920101, end: 20020101
  2. SIMVASTATIN [Concomitant]
  3. NICORANDIL (NICORANDIL) [Concomitant]
  4. ATENOLOL [Concomitant]
  5. GLYCERYL TRINITRATE (GLYCERYL TRINITRATE) [Concomitant]

REACTIONS (6)
  - DENTAL CARIES [None]
  - DISCOMFORT [None]
  - GINGIVITIS [None]
  - OEDEMA PERIPHERAL [None]
  - PAIN [None]
  - TOOTH LOSS [None]
